FAERS Safety Report 9358759 (Version 1)
Quarter: 2013Q2

REPORT INFORMATION
  Report Type: Spontaneous
  Country: US (occurrence: US)
  Receive Date: 20130620
  Receipt Date: 20130620
  Transmission Date: 20140414
  Serious: Yes (Other)
  Sender: FDA-Public Use
  Company Number: US-PFIZER INC-2013179965

PATIENT
  Sex: Female

DRUGS (2)
  1. GENOTROPIN MQ [Suspect]
     Indication: PRADER-WILLI SYNDROME
     Dosage: 0.4 MG, UNK
     Dates: start: 2013
  2. GENOTROPIN MQ [Suspect]
     Dosage: 0.2 MG, UNK

REACTIONS (1)
  - Hydrocephalus [Unknown]
